FAERS Safety Report 24612387 (Version 1)
Quarter: 2024Q4

REPORT INFORMATION
  Report Type: Report from Study
  Country: EG (occurrence: EG)
  Receive Date: 20241113
  Receipt Date: 20241113
  Transmission Date: 20250115
  Serious: Yes (Life-Threatening, Other)
  Sender: NOVARTIS
  Company Number: EG-002147023-NVSC2024EG218463

PATIENT
  Age: 40 Year
  Sex: Female

DRUGS (6)
  1. ENTRESTO [Suspect]
     Active Substance: SACUBITRIL\VALSARTAN
     Indication: Cardiac failure
     Dosage: 200 MG, BID (ONE TABLET TWICE DAILY)
     Route: 048
     Dates: start: 2023
  2. CARVEDILOL [Suspect]
     Active Substance: CARVEDILOL
     Indication: Cardiac disorder
     Dosage: 25 MG, QD (STARTED 6 MONTHS AGO)
     Route: 048
  3. FUROSEMIDE\SPIRONOLACTONE [Suspect]
     Active Substance: FUROSEMIDE\SPIRONOLACTONE
     Indication: Polyuria
     Dosage: 100 MG, QD (STARTED 6 MONTHS AGO)
     Route: 048
  4. ALDOMET [Suspect]
     Active Substance: METHYLDOPA
     Indication: Hypertension
     Dosage: 250 MG, TID (2 TABLET THREE TIMES PER DAY) (STARTED 6 MONTHS AGO)
     Route: 048
  5. CARDURA [Suspect]
     Active Substance: DOXAZOSIN MESYLATE
     Indication: Hypertension
     Dosage: 4 MG, BID (STARTED 6 MONTHS AGO)
     Route: 048
  6. TORSEMIDE [Suspect]
     Active Substance: TORSEMIDE
     Indication: Polyuria
     Dosage: 20 MG, QD (STARTED 6 MONTHS AGO)
     Route: 048

REACTIONS (7)
  - Dyspnoea [Not Recovered/Not Resolved]
  - Hypertension [Not Recovered/Not Resolved]
  - Hypotension [Not Recovered/Not Resolved]
  - Syncope [Unknown]
  - Loss of consciousness [Unknown]
  - Body temperature decreased [Unknown]
  - Dysstasia [Unknown]
